FAERS Safety Report 5379332-9 (Version None)
Quarter: 2007Q3

REPORT INFORMATION
  Report Type: 
  Country: None (occurrence: None)
  Receive Date: 20070705
  Receipt Date: 20070627
  Transmission Date: 20080115
  Serious: Yes (Hospitalization)
  Sender: FDA-Public Use
  Company Number: DE-PFIZER INC-2003182384DE

PATIENT
  Sex: Female
  Weight: 51 kg

DRUGS (2)
  1. GENOTROPIN [Suspect]
     Indication: CROHN'S DISEASE
     Dosage: DAILY DOSE:3.2I.U.-FREQ:DAILY
     Route: 058
     Dates: start: 20021008, end: 20031017
  2. AZATHIOPRINE [Concomitant]
     Indication: CROHN'S DISEASE
     Dosage: DAILY DOSE:125MG-FREQ:DAILY
     Route: 048
     Dates: start: 20010322, end: 20031017

REACTIONS (1)
  - ILEAL PERFORATION [None]
